FAERS Safety Report 4268186-X (Version None)
Quarter: 2004Q1

REPORT INFORMATION
  Report Type: 
  Country: None (occurrence: None)
  Receive Date: 20040109
  Receipt Date: 20040107
  Transmission Date: 20041129
  Serious: Yes (Hospitalization)
  Sender: FDA-Public Use
  Company Number: WAES 0401FRA00011

PATIENT
  Age: 53 Year
  Sex: Male
  Weight: 84 kg

DRUGS (7)
  1. ABACAVIR SULFATE [Concomitant]
     Indication: HIV INFECTION
     Route: 048
  2. CRIXIVAN [Suspect]
     Indication: HIV INFECTION
     Route: 048
  3. MORPHINE SULFATE [Suspect]
     Route: 048
  4. RIBAVIRIN [Suspect]
     Route: 048
  5. RITONAVIR [Concomitant]
     Indication: HIV INFECTION
     Route: 048
  6. SULFAMETHOXAZOLE AND TRIMETHOPRIM [Suspect]
     Route: 048
  7. TENOFOVIR DISOPROXIL FUMARATE [Concomitant]
     Indication: HIV INFECTION
     Route: 048

REACTIONS (1)
  - TENDONITIS [None]
